FAERS Safety Report 8245059-9 (Version None)
Quarter: 2012Q1

REPORT INFORMATION
  Report Type: 
  Country: None (occurrence: None)
  Receive Date: 20120329
  Receipt Date: 20120322
  Transmission Date: 20120608
  Serious: Yes (Hospitalization)
  Sender: FDA-Public Use
  Company Number: US-GLAXOSMITHKLINE-A0907777A

PATIENT
  Age: 75 Year
  Sex: Male
  Weight: 104.5 kg

DRUGS (8)
  1. PROTONIX [Concomitant]
  2. FLONASE [Concomitant]
  3. PROSCAR [Concomitant]
  4. AVANDIA [Suspect]
     Indication: DIABETES MELLITUS
     Dosage: 8MG PER DAY
     Route: 048
     Dates: start: 20050101, end: 20070601
  5. DIOVAN [Concomitant]
  6. LOVASTATIN [Concomitant]
  7. METOPROLOL SUCCINATE [Concomitant]
  8. CATAPRES [Concomitant]

REACTIONS (2)
  - HEART INJURY [None]
  - CARDIAC FAILURE CONGESTIVE [None]
